FAERS Safety Report 7545468-7 (Version None)
Quarter: 2011Q2

REPORT INFORMATION
  Report Type: 
  Country: None (occurrence: None)
  Receive Date: 20110614
  Receipt Date: 20110609
  Transmission Date: 20111010
  Serious: Yes (Death, Other)
  Sender: FDA-Public Use
  Company Number: DE-CELGENEUS-062-C5013-11021182

PATIENT
  Age: 70 Year
  Sex: Female

DRUGS (8)
  1. MELPHALAN HYDROCHLORIDE [Suspect]
     Route: 065
     Dates: start: 20080301, end: 20080704
  2. MELPHALAN HYDROCHLORIDE [Suspect]
     Indication: MULTIPLE MYELOMA
     Dosage: .18 MILLIGRAM/KILOGRAM
     Route: 065
     Dates: start: 20070601, end: 20080201
  3. PREDNISONE [Suspect]
     Indication: MULTIPLE MYELOMA
     Dosage: 2 MILLIGRAM/KILOGRAM
     Route: 065
     Dates: start: 20070601, end: 20080201
  4. PREDNISONE [Suspect]
     Route: 065
     Dates: start: 20080301, end: 20080704
  5. RED BLOOD CELLS [Concomitant]
     Route: 051
     Dates: start: 20070628, end: 20100401
  6. LENALIDOMIDE [Suspect]
     Dosage: 25 MILLIGRAM
     Route: 048
     Dates: start: 20080701, end: 20080908
  7. LENALIDOMIDE [Suspect]
     Indication: MULTIPLE MYELOMA
     Dosage: 10 MILLIGRAM
     Route: 048
     Dates: start: 20070601, end: 20080201
  8. LENALIDOMIDE [Suspect]
     Dosage: 25 MILLIGRAM
     Route: 048
     Dates: start: 20080301, end: 20080401

REACTIONS (2)
  - ACUTE MYELOID LEUKAEMIA [None]
  - MULTIPLE MYELOMA [None]
